FAERS Safety Report 7675748-6 (Version None)
Quarter: 2011Q3

REPORT INFORMATION
  Report Type: 
  Country: None (occurrence: None)
  Receive Date: 20110810
  Receipt Date: 20110531
  Transmission Date: 20111222
  Serious: No
  Sender: FDA-Public Use
  Company Number: US-TYCO HEALTHCARE/MALLINCKRODT-T201100830

PATIENT
  Sex: Female

DRUGS (4)
  1. PENNSAID [Suspect]
     Dosage: UNK
     Route: 061
     Dates: start: 20110401, end: 20110401
  2. NEXIUM [Concomitant]
     Dosage: 20 MG, QD
  3. BYOSTOLIC [Concomitant]
     Indication: BLOOD PRESSURE INCREASED
     Dosage: 2.5 MG, BID
  4. DIAZIDE                            /00413701/ [Concomitant]
     Dosage: 25 MG, QD

REACTIONS (4)
  - HEADACHE [None]
  - ABDOMINAL DISCOMFORT [None]
  - NAUSEA [None]
  - FLUSHING [None]
